FAERS Safety Report 17665263 (Version 1)
Quarter: 2020Q2

REPORT INFORMATION
  Report Type: Report from Study
  Country: US (occurrence: US)
  Receive Date: 20200414
  Receipt Date: 20200414
  Transmission Date: 20200713
  Serious: Yes (Life-Threatening)
  Sender: FDA-Public Use
  Company Number: US-MYLANLABS-2020M1037176

PATIENT
  Age: 42 Year
  Sex: Male
  Weight: 79.4 kg

DRUGS (6)
  1. KETAMINE [Suspect]
     Active Substance: KETAMINE
     Indication: AGITATION
     Dosage: 3 MILLIGRAM/KILOGRAM
     Route: 042
  2. LORAZEPAM. [Concomitant]
     Active Substance: LORAZEPAM
     Indication: PRODUCT USED FOR UNKNOWN INDICATION
     Dosage: 1 MILLIGRAM
     Route: 042
  3. KETAMINE [Suspect]
     Active Substance: KETAMINE
     Indication: SEDATIVE THERAPY
     Dosage: 2 MILLIGRAM/KILOGRAM
     Route: 042
  4. KETAMINE [Suspect]
     Active Substance: KETAMINE
     Indication: DELIRIUM
     Dosage: 4 MILLIGRAM/KILOGRAM
     Route: 030
  5. HALOPERIDOL. [Concomitant]
     Active Substance: HALOPERIDOL
     Indication: PRODUCT USED FOR UNKNOWN INDICATION
     Dosage: 5 MILLIGRAM
     Route: 030
  6. LORAZEPAM. [Concomitant]
     Active Substance: LORAZEPAM
     Dosage: 2 MILLIGRAM
     Route: 042

REACTIONS (1)
  - Respiratory disorder [Unknown]
